FAERS Safety Report 15721707 (Version 1)
Quarter: 2018Q4

REPORT INFORMATION
  Report Type: Spontaneous
  Country: SE (occurrence: SE)
  Receive Date: 20181214
  Receipt Date: 20181214
  Transmission Date: 20190205
  Serious: Yes (Other)
  Sender: FDA-Public Use
  Company Number: SE-IPSEN BIOPHARMACEUTICALS, INC.-2018-19056

PATIENT
  Age: 14 Year
  Sex: Female

DRUGS (8)
  1. IRINOTECAN LIPOSOME [Suspect]
     Active Substance: IRINOTECAN
     Indication: ASTROCYTOMA, LOW GRADE
  2. TN UNSPECIFIED [Suspect]
     Active Substance: TROLNITRATE
     Indication: ASTROCYTOMA, LOW GRADE
  3. TN UNSPECIFIED [Suspect]
     Active Substance: TROLNITRATE
     Indication: ASTROCYTOMA, LOW GRADE
  4. IRINOTECAN LIPOSOME [Suspect]
     Active Substance: IRINOTECAN
     Indication: OFF LABEL USE
  5. TN UNSPECIFIED [Suspect]
     Active Substance: TROLNITRATE
     Indication: ASTROCYTOMA, LOW GRADE
  6. TN UNSPECIFIED [Suspect]
     Active Substance: TROLNITRATE
     Indication: ASTROCYTOMA, LOW GRADE
  7. TN UNSPECIFIED [Suspect]
     Active Substance: TROLNITRATE
     Indication: ASTROCYTOMA, LOW GRADE
  8. TN UNSPECIFIED [Suspect]
     Active Substance: TROLNITRATE
     Indication: ASTROCYTOMA, LOW GRADE

REACTIONS (3)
  - Dysphagia [Unknown]
  - Astrocytoma, low grade [Unknown]
  - Malignant neoplasm progression [Unknown]
